FAERS Safety Report 7761429-7 (Version None)
Quarter: 2011Q3

REPORT INFORMATION
  Report Type: 
  Country: None (occurrence: None)
  Receive Date: 20110920
  Receipt Date: 20110916
  Transmission Date: 20111222
  Serious: Yes (Other)
  Sender: FDA-Public Use
  Company Number: DE-JNJFOC-20110905927

PATIENT
  Sex: Female

DRUGS (2)
  1. PALEXIA RETARD [Suspect]
     Indication: BACK PAIN
     Dosage: 1-0-1
     Route: 048
     Dates: start: 20110628, end: 20110708
  2. PALEXIA RETARD [Suspect]
     Route: 048

REACTIONS (4)
  - DRUG INEFFECTIVE [None]
  - DIZZINESS [None]
  - HEPATIC ENZYME ABNORMAL [None]
  - FALL [None]
